FAERS Safety Report 21365529 (Version 4)
Quarter: 2022Q4

REPORT INFORMATION
  Report Type: Spontaneous
  Country: US (occurrence: US)
  Receive Date: 20220922
  Receipt Date: 20221216
  Transmission Date: 20230112
  Serious: No
  Sender: FDA-Public Use
  Company Number: US-PHARMAESSENTIA CORPORATION-US-2022-PEC-000736

PATIENT

DRUGS (4)
  1. BESREMI [Suspect]
     Active Substance: ROPEGINTERFERON ALFA-2B-NJFT
     Indication: Polycythaemia vera
     Dosage: 100 MCG, Q2W
     Route: 058
     Dates: start: 20220709
  2. BESREMI [Suspect]
     Active Substance: ROPEGINTERFERON ALFA-2B-NJFT
     Dosage: 150 MCG
     Route: 058
  3. BESREMI [Suspect]
     Active Substance: ROPEGINTERFERON ALFA-2B-NJFT
     Dosage: 250 MCG
     Route: 058
  4. BESREMI [Suspect]
     Active Substance: ROPEGINTERFERON ALFA-2B-NJFT
     Dosage: 250 MCG, Q2W
     Route: 058
     Dates: start: 20220906

REACTIONS (20)
  - Urticaria aquagenic [Not Recovered/Not Resolved]
  - Palpitations [Unknown]
  - Chest discomfort [Unknown]
  - Paraesthesia [Unknown]
  - Anxiety [Unknown]
  - Frustration tolerance decreased [Unknown]
  - Inappropriate schedule of product administration [Unknown]
  - Allergic respiratory symptom [Unknown]
  - Liver disorder [Unknown]
  - Product storage error [Unknown]
  - Product dose omission issue [Unknown]
  - Headache [Not Recovered/Not Resolved]
  - Hypersomnia [Not Recovered/Not Resolved]
  - Pruritus [Not Recovered/Not Resolved]
  - Pain [Unknown]
  - Contusion [Unknown]
  - Chills [Recovered/Resolved]
  - Acne [Unknown]
  - Agitation [Unknown]
  - Platelet count decreased [Unknown]

NARRATIVE: CASE EVENT DATE: 20220701
